FAERS Safety Report 4340636-X (Version None)
Quarter: 2004Q2

REPORT INFORMATION
  Report Type: 
  Country: None (occurrence: None)
  Receive Date: 20040416
  Receipt Date: 20040416
  Transmission Date: 20050107
  Serious: Yes (Hospitalization)
  Sender: FDA-Public Use
  Company Number: None

PATIENT
  Sex: Male

DRUGS (3)
  1. ZOMETA [Suspect]
     Indication: RENAL CELL CARCINOMA STAGE UNSPECIFIED
     Dosage: 4MG IV Q 4 WKS
     Route: 042
     Dates: start: 20040329
  2. INTERLEUKIN-2 22MU VIAL CHIRON [Suspect]
     Indication: RENAL CELL CARCINOMA STAGE UNSPECIFIED
     Dosage: 7MU/M2 DAYS 1-5, 8-12, 15-20
     Dates: start: 20040329, end: 20040402
  3. INTERLEUKIN-2 22MU VIAL CHIRON [Suspect]
     Indication: RENAL CELL CARCINOMA STAGE UNSPECIFIED
     Dosage: 7MU/M2 DAYS 1-5, 8-12, 15-20
     Dates: start: 20040405

REACTIONS (4)
  - BLOOD CREATININE INCREASED [None]
  - BLOOD GLUCOSE INCREASED [None]
  - HYPOGLYCAEMIA [None]
  - MENTAL STATUS CHANGES [None]
